FAERS Safety Report 7585072-8 (Version None)
Quarter: 2011Q2

REPORT INFORMATION
  Report Type: 
  Country: None (occurrence: None)
  Receive Date: 20110630
  Receipt Date: 20110621
  Transmission Date: 20111010
  Serious: Yes (Hospitalization, Other)
  Sender: FDA-Public Use
  Company Number: US-AMGEN-USACT2011031507

PATIENT
  Age: 50 Year
  Sex: Female

DRUGS (5)
  1. BEVACIZUMAB [Concomitant]
     Indication: UTERINE LEIOMYOSARCOMA
     Dosage: UNK UNK, BLINDED
     Route: 042
     Dates: start: 20101230
  2. FILGRASTIM [Suspect]
     Indication: UTERINE LEIOMYOSARCOMA
     Dosage: 150 A?G/M2, UNK
     Route: 058
     Dates: start: 20101230
  3. PEGFILGRASTIM [Suspect]
     Indication: UTERINE LEIOMYOSARCOMA
     Dosage: 6 MG, UNK
     Route: 058
     Dates: start: 20101230
  4. DOCETAXEL [Concomitant]
     Indication: UTERINE LEIOMYOSARCOMA
     Dosage: 75 MG/M2, UNK
     Dates: start: 20101230
  5. GEMCITABINE [Concomitant]
     Indication: UTERINE LEIOMYOSARCOMA
     Dosage: 900 MG/M2, UNK
     Route: 042
     Dates: start: 20101230

REACTIONS (4)
  - LUNG INFECTION [None]
  - DYSPNOEA [None]
  - EMBOLISM [None]
  - FATIGUE [None]
